FAERS Safety Report 8819747 (Version 1)
Quarter: 2012Q4

REPORT INFORMATION
  Report Type: 
  Country: US (occurrence: US)
  Receive Date: 20121001
  Receipt Date: 20121001
  Transmission Date: 20130627
  Serious: Yes (Other)
  Sender: FDA-Public Use
  Company Number: US-ROCHE-1124729

PATIENT
  Sex: Female

DRUGS (7)
  1. HERCEPTIN [Suspect]
     Indication: BREAST CANCER
     Route: 065
     Dates: start: 20000210
  2. NOVALDEX [Concomitant]
  3. COUMADIN [Concomitant]
     Route: 065
     Dates: start: 201201
  4. ARIMIDEX [Concomitant]
  5. TAXOL [Concomitant]
     Route: 065
     Dates: start: 20000217
  6. KEFLEX [Concomitant]
  7. LEVAQUIN [Concomitant]

REACTIONS (8)
  - Painful respiration [Unknown]
  - Dyspnoea [Unknown]
  - Back pain [Unknown]
  - Catheter site erythema [Unknown]
  - Catheter site discharge [Unknown]
  - Dizziness [Unknown]
  - Nausea [Unknown]
  - Constipation [Unknown]
